FAERS Safety Report 12835717 (Version 1)
Quarter: 2016Q4

REPORT INFORMATION
  Report Type: Spontaneous
  Country: US (occurrence: US)
  Receive Date: 20161011
  Receipt Date: 20161011
  Transmission Date: 20170207
  Serious: No
  Sender: FDA-Public Use
  Company Number: US-TRIS PHARMA, INC.-1058180

PATIENT

DRUGS (1)
  1. IBUPROFEN ORAL SUSPENSION DROPS [Suspect]
     Active Substance: IBUPROFEN
     Dates: start: 20151116, end: 20151116

REACTIONS (1)
  - Accidental exposure to product [None]
